FAERS Safety Report 21635846 (Version 1)
Quarter: 2022Q4

REPORT INFORMATION
  Report Type: Report from Study
  Country: US (occurrence: US)
  Receive Date: 20221123
  Receipt Date: 20221123
  Transmission Date: 20230113
  Serious: Yes (Other)
  Sender: FDA-Public Use
  Company Number: US-BRISTOL-MYERS SQUIBB COMPANY-2022-070085

PATIENT
  Age: 55 Year
  Sex: Male
  Weight: 93 kg

DRUGS (14)
  1. REVLIMID [Suspect]
     Active Substance: LENALIDOMIDE
     Indication: Plasma cell myeloma
     Route: 048
     Dates: start: 20220617
  2. REVLIMID [Suspect]
     Active Substance: LENALIDOMIDE
     Dosage: 21 OUT OF 28 DAYS
     Route: 048
     Dates: start: 20220617
  3. ALLOPURINOL [Concomitant]
     Active Substance: ALLOPURINOL
  4. ACYCLOVIR [Concomitant]
     Active Substance: ACYCLOVIR
  5. ASPIRIN [Concomitant]
     Active Substance: ASPIRIN
  6. CETIRIZINE [Concomitant]
     Active Substance: CETIRIZINE HYDROCHLORIDE
  7. COLCHICINE [Concomitant]
     Active Substance: COLCHICINE
  8. DEXAMETHASONE [Concomitant]
     Active Substance: DEXAMETHASONE
  9. LIPITOR [Concomitant]
     Active Substance: ATORVASTATIN CALCIUM
  10. PREDNISONE [Concomitant]
     Active Substance: PREDNISONE
  11. TYLENOL [Concomitant]
     Active Substance: ACETAMINOPHEN
  12. ZALEPLON [Concomitant]
     Active Substance: ZALEPLON
  13. PANTOPRAZOLE SODIUM [Concomitant]
     Active Substance: PANTOPRAZOLE SODIUM
  14. OXYCODONE [Concomitant]
     Active Substance: OXYCODONE

REACTIONS (5)
  - Pyrexia [Unknown]
  - Rash [Unknown]
  - Parainfluenzae virus infection [Recovered/Resolved]
  - Rib fracture [Unknown]
  - Infusion related reaction [Recovered/Resolved]

NARRATIVE: CASE EVENT DATE: 20221001
